FAERS Safety Report 7404171-4 (Version None)
Quarter: 2011Q2

REPORT INFORMATION
  Report Type: 
  Country: None (occurrence: None)
  Receive Date: 20110408
  Receipt Date: 20110404
  Transmission Date: 20111010
  Serious: Yes (Other)
  Sender: FDA-Public Use
  Company Number: US-BAYER-2011-029560

PATIENT
  Sex: Female

DRUGS (2)
  1. YAZ [Suspect]
     Dosage: UNK
     Dates: start: 20061101, end: 20091101
  2. YASMIN [Suspect]
     Dosage: UNK
     Dates: start: 20061101, end: 20091101

REACTIONS (7)
  - SUPRAVENTRICULAR TACHYCARDIA [None]
  - EMOTIONAL DISTRESS [None]
  - ANXIETY [None]
  - MENTAL DISORDER [None]
  - INJURY [None]
  - PAIN [None]
  - FEAR [None]
